FAERS Safety Report 5392093-2 (Version None)
Quarter: 2007Q3

REPORT INFORMATION
  Report Type: 
  Country: None (occurrence: None)
  Receive Date: 20070718
  Receipt Date: 20070718
  Transmission Date: 20080115
  Serious: Yes (Other)
  Sender: FDA-Public Use
  Company Number: None

PATIENT
  Age: 71 Year
  Sex: Female
  Weight: 61.6892 kg

DRUGS (1)
  1. CISPLATIN 50 MG AMERICAN PHARMACEUTICAL [Suspect]
     Indication: LUNG NEOPLASM MALIGNANT
     Dosage: 20 MG EVERY 2 WEEKS IV
     Route: 042
     Dates: start: 20060927, end: 20070717

REACTIONS (2)
  - INFUSION RELATED REACTION [None]
  - PRURITUS [None]
